FAERS Safety Report 16884633 (Version 2)
Quarter: 2019Q4

REPORT INFORMATION
  Report Type: Report from Study
  Country: GB (occurrence: GB)
  Receive Date: 20191004
  Receipt Date: 20191118
  Transmission Date: 20200122
  Serious: Yes (Other)
  Sender: FDA-Public Use
  Company Number: GB-SAMSUNG BIOEPIS-SB-2019-26421

PATIENT
  Age: 68 Year
  Sex: Female

DRUGS (1)
  1. IMRALDI [Suspect]
     Active Substance: ADALIMUMAB
     Indication: RHEUMATOID ARTHRITIS
     Route: 058
     Dates: start: 20190815

REACTIONS (7)
  - Malaise [Unknown]
  - Kidney infection [Not Recovered/Not Resolved]
  - Urinary tract infection [Unknown]
  - Lower respiratory tract infection [Unknown]
  - Back pain [Not Recovered/Not Resolved]
  - Injection site pain [Unknown]
  - Pyrexia [Not Recovered/Not Resolved]

NARRATIVE: CASE EVENT DATE: 20190817
